FAERS Safety Report 8240915-X (Version None)
Quarter: 2012Q1

REPORT INFORMATION
  Report Type: 
  Country: None (occurrence: None)
  Receive Date: 20120328
  Receipt Date: 20120326
  Transmission Date: 20120608
  Serious: No
  Sender: FDA-Public Use
  Company Number: US-BAYER-2012-029915

PATIENT
  Sex: Female

DRUGS (1)
  1. CIPROFLOXACIN HCL [Suspect]
     Dosage: 500 MG, BID
     Route: 048
     Dates: start: 20120315

REACTIONS (3)
  - PAIN IN EXTREMITY [None]
  - JOINT SWELLING [None]
  - GAIT DISTURBANCE [None]
